FAERS Safety Report 10034162 (Version 1)
Quarter: 2014Q1

REPORT INFORMATION
  Report Type: Spontaneous
  Country: US (occurrence: None)
  Receive Date: 20140324
  Receipt Date: 20140324
  Transmission Date: 20141002
  Serious: Yes (Hospitalization)
  Sender: FDA-Public Use
  Company Number: None

PATIENT
  Age: 78 Year
  Sex: Male
  Weight: 81.8 kg

DRUGS (13)
  1. TACROLIMUS [Suspect]
     Indication: HEART TRANSPLANT
     Dosage: TAKE 3 TABLES QAM AND 2 TABLES, BID, PO
     Dates: start: 2005
  2. MYCOPHENOLATE [Suspect]
     Route: 048
     Dates: start: 2005
  3. BUMEX [Concomitant]
  4. PROTONIX [Concomitant]
  5. LYRICA [Concomitant]
  6. VITAMIN E [Concomitant]
  7. ZANTAC [Concomitant]
  8. FLOMAX [Concomitant]
  9. ASA [Concomitant]
  10. VITAMIN C [Concomitant]
  11. XARELTO [Concomitant]
  12. VITAMIN D3 [Concomitant]
  13. ULORIC ACID [Concomitant]

REACTIONS (2)
  - Clostridium difficile infection [None]
  - Guillain-Barre syndrome [None]
